FAERS Safety Report 9113668 (Version 2)
Quarter: 2013Q1

REPORT INFORMATION
  Report Type: Spontaneous
  Country: GB (occurrence: GB)
  Receive Date: 20130208
  Receipt Date: 20130306
  Transmission Date: 20140127
  Serious: No
  Sender: FDA-Public Use
  Company Number: GB-ROCHE-1185808

PATIENT
  Sex: Female
  Weight: 75 kg

DRUGS (2)
  1. ROACCUTANE [Suspect]
     Indication: ACNE
     Route: 065
  2. ROACCUTANE [Suspect]
     Route: 048
     Dates: start: 20121206, end: 20130111

REACTIONS (2)
  - Pregnancy [Unknown]
  - Abortion induced [Unknown]
